FAERS Safety Report 9130233 (Version 2)
Quarter: 2013Q4

REPORT INFORMATION
  Report Type: Spontaneous
  Country: US (occurrence: US)
  Receive Date: 20130228
  Receipt Date: 20131223
  Transmission Date: 20140711
  Serious: Yes (Other)
  Sender: FDA-Public Use
  Company Number: US-ROCHE-771213

PATIENT
  Age: 16 Year
  Sex: Female
  Weight: 53.5 kg

DRUGS (2)
  1. ACCUTANE [Suspect]
     Indication: ACNE
     Route: 065
     Dates: start: 20040701, end: 20041231
  2. IBUPROFEN [Concomitant]

REACTIONS (13)
  - Crohn^s disease [Unknown]
  - Emotional distress [Unknown]
  - Inflammatory bowel disease [Unknown]
  - Anal fissure [Unknown]
  - Arthritis [Unknown]
  - Lip dry [Unknown]
  - Nasal dryness [Unknown]
  - Blood cholesterol increased [Unknown]
  - Blood triglycerides increased [Unknown]
  - Arthralgia [Unknown]
  - Paronychia [Unknown]
  - Alopecia [Unknown]
  - Skin exfoliation [Unknown]
